FAERS Safety Report 23426890 (Version 4)
Quarter: 2024Q1

REPORT INFORMATION
  Report Type: Spontaneous
  Country: DE (occurrence: DE)
  Receive Date: 20240122
  Receipt Date: 20240213
  Transmission Date: 20240409
  Serious: Yes (Other)
  Sender: FDA-Public Use
  Company Number: DE-BAYER-2023A090466

PATIENT
  Age: 52 Year
  Sex: Male

DRUGS (3)
  1. SORAFENIB [Suspect]
     Active Substance: SORAFENIB
     Indication: Hepatocellular carcinoma
     Dosage: 800 MILLIGRAM, QD (400 MG, BID)
     Route: 065
  2. SORAFENIB [Suspect]
     Active Substance: SORAFENIB
     Dosage: 400 MILLIGRAM, BID
     Route: 065
  3. INTERFERON [Suspect]
     Active Substance: INTERFERON
     Indication: Hepatitis C
     Dosage: UNK
     Route: 065

REACTIONS (4)
  - Haemorrhage intracranial [Recovered/Resolved]
  - Disease progression [Recovered/Resolved]
  - Treatment failure [Recovered/Resolved]
  - Drug ineffective [Unknown]
